FAERS Safety Report 7309513-6 (Version None)
Quarter: 2011Q1

REPORT INFORMATION
  Report Type: 
  Country: None (occurrence: None)
  Receive Date: 20110223
  Receipt Date: 20110210
  Transmission Date: 20110831
  Serious: Yes (Other)
  Sender: FDA-Public Use
  Company Number: NL-GENENTECH-313835

PATIENT
  Sex: Male

DRUGS (2)
  1. MABTHERA [Suspect]
     Route: 042
  2. MABTHERA [Suspect]
     Indication: B-CELL LYMPHOMA
     Dosage: UNK
     Route: 042

REACTIONS (5)
  - LETHARGY [None]
  - COGNITIVE DISORDER [None]
  - DISTURBANCE IN ATTENTION [None]
  - CREUTZFELDT-JAKOB DISEASE [None]
  - EMOTIONAL DISORDER [None]
